FAERS Safety Report 9394561 (Version 1)
Quarter: 2013Q3

REPORT INFORMATION
  Report Type: Spontaneous
  Country: JP (occurrence: JP)
  Receive Date: 20130711
  Receipt Date: 20130711
  Transmission Date: 20140515
  Serious: Yes (Other)
  Sender: FDA-Public Use
  Company Number: PHHY2013JP073590

PATIENT
  Sex: 0

DRUGS (2)
  1. NEORAL [Suspect]
     Indication: SCLERODERMA
     Dosage: 125 MG, EVERY MORNING
     Route: 048
  2. NEORAL [Suspect]
     Dosage: 250 MG
     Route: 048

REACTIONS (2)
  - Intentional drug misuse [Unknown]
  - Extra dose administered [Unknown]
